FAERS Safety Report 17884328 (Version 2)
Quarter: 2020Q3

REPORT INFORMATION
  Report Type: Spontaneous
  Country: FR (occurrence: FR)
  Receive Date: 20200611
  Receipt Date: 20200701
  Transmission Date: 20201103
  Serious: Yes (Other)
  Sender: FDA-Public Use
  Company Number: NVSC2020FR161572

PATIENT
  Sex: Female

DRUGS (1)
  1. SANDOSTATINE L.P. [Suspect]
     Active Substance: OCTREOTIDE ACETATE
     Indication: PRODUCT USED FOR UNKNOWN INDICATION
     Dosage: 30 MG, QMO
     Route: 065
     Dates: start: 2015

REACTIONS (4)
  - Needle issue [Unknown]
  - Flushing [Unknown]
  - Carcinoid syndrome [Unknown]
  - Underdose [Unknown]

NARRATIVE: CASE EVENT DATE: 202005
